FAERS Safety Report 25004601 (Version 1)
Quarter: 2025Q1

REPORT INFORMATION
  Report Type: Spontaneous
  Country: US (occurrence: None)
  Receive Date: 20250222
  Receipt Date: 20250222
  Transmission Date: 20250409
  Serious: Yes (unspecified)
  Sender: FDA-CTU
  Company Number: None

PATIENT
  Age: 10 Year
  Sex: Male
  Weight: 41.85 kg

DRUGS (1)
  1. SUN BUM PREMIUM MOISTURIZING SUNSCREEN [Suspect]
     Active Substance: AVOBENZONE\HOMOSALATE\OCTISALATE\OCTOCRYLENE
     Indication: Sunburn
     Route: 061
     Dates: start: 20250220, end: 20250221

REACTIONS (3)
  - Application site rash [None]
  - Application site pruritus [None]
  - Sunscreen sensitivity [None]

NARRATIVE: CASE EVENT DATE: 20250220
